FAERS Safety Report 6107280-5 (Version None)
Quarter: 2009Q1

REPORT INFORMATION
  Report Type: 
  Country: None (occurrence: None)
  Receive Date: 20090309
  Receipt Date: 20090304
  Transmission Date: 20090719
  Serious: Yes (Other)
  Sender: FDA-Public Use
  Company Number: FR-BRISTOL-MYERS SQUIBB COMPANY-14503221

PATIENT
  Age: 67 Year
  Sex: Female

DRUGS (5)
  1. ECAZIDE TABS 50 MG/25 MG [Suspect]
     Indication: HYPERTENSION
     Dosage: 1 DF=1 TAB;OLD FORM:ECAZIDE1TAB/D FROM MAY1989.NEW FORM-W/OUT LAKE OF SUNSET YELLOW S(E110) MORNING
     Dates: start: 20090207, end: 20090219
  2. PIASCLEDINE [Concomitant]
     Route: 048
     Dates: start: 20050412
  3. ALTIM [Concomitant]
     Dosage: ALTIM INJECTION
     Dates: start: 20090202
  4. BETAMETHASONE [Concomitant]
     Dosage: INJ
     Dates: start: 20090202
  5. DIPROSTENE [Concomitant]
     Dates: start: 20090202

REACTIONS (1)
  - HYPERTENSION [None]
